FAERS Safety Report 6022742-7 (Version None)
Quarter: 2008Q4

REPORT INFORMATION
  Report Type: 
  Country: None (occurrence: None)
  Receive Date: 20081230
  Receipt Date: 20081217
  Transmission Date: 20090506
  Serious: Yes (Hospitalization)
  Sender: FDA-Public Use
  Company Number: DE-PFIZER INC-2008154955

PATIENT

DRUGS (1)
  1. SUTENT [Suspect]

REACTIONS (1)
  - PULMONARY NECROSIS [None]
